FAERS Safety Report 6895678-7 (Version None)
Quarter: 2010Q3

REPORT INFORMATION
  Report Type: 
  Country: None (occurrence: None)
  Receive Date: 20100802
  Receipt Date: 20100723
  Transmission Date: 20110219
  Serious: Yes (Hospitalization)
  Sender: FDA-Public Use
  Company Number: SE-JNJFOC-20100708621

PATIENT
  Age: 31 Year
  Sex: Male

DRUGS (6)
  1. IPREN [Suspect]
     Indication: ANTIPYRESIS
     Route: 048
  2. IPREN [Suspect]
     Indication: ANALGESIC THERAPY
     Route: 048
  3. PARACETAMOL [Suspect]
  4. PARACETAMOL [Suspect]
     Indication: ANALGESIC THERAPY
  5. NICOTINE [Concomitant]
     Indication: SMOKING CESSATION THERAPY
     Route: 060
  6. FAMOTIDIN [Concomitant]
     Indication: GASTROOESOPHAGEAL REFLUX DISEASE
     Route: 048

REACTIONS (1)
  - HYPERSENSITIVITY [None]
